FAERS Safety Report 25402230 (Version 1)
Quarter: 2025Q2

REPORT INFORMATION
  Report Type: Report from Study
  Country: US (occurrence: US)
  Receive Date: 20250605
  Receipt Date: 20250605
  Transmission Date: 20250716
  Serious: No
  Sender: MALLINCKRODT
  Company Number: US-MALLINCKRODT-MNK202501581

PATIENT
  Age: 48 Year
  Sex: Female
  Weight: 215 kg

DRUGS (13)
  1. CORTICOTROPIN [Suspect]
     Active Substance: CORTICOTROPIN
     Indication: Dermatomyositis
     Route: 058
     Dates: start: 20250329, end: 2025
  2. CORTICOTROPIN [Suspect]
     Active Substance: CORTICOTROPIN
     Indication: Dermatomyositis
  3. CORTICOTROPIN [Suspect]
     Active Substance: CORTICOTROPIN
     Indication: Dermatomyositis
  4. VITAMIN D [Concomitant]
     Active Substance: VITAMIN D NOS
  5. TRULICITY [Concomitant]
     Active Substance: DULAGLUTIDE
  6. CLONAZEPAM [Concomitant]
     Active Substance: CLONAZEPAM
  7. FAMOTIDINE [Concomitant]
     Active Substance: FAMOTIDINE
  8. SERTRALINE [Concomitant]
     Active Substance: SERTRALINE HYDROCHLORIDE
  9. PIRACETAM [Concomitant]
     Active Substance: PIRACETAM
  10. ONDANSETRON [Concomitant]
     Active Substance: ONDANSETRON
  11. RIZATRIPTAN [Concomitant]
     Active Substance: RIZATRIPTAN
  12. PLAQUENIL [Concomitant]
     Active Substance: HYDROXYCHLOROQUINE SULFATE
  13. GAMMAGARD [Concomitant]
     Active Substance: HUMAN IMMUNOGLOBULIN G

REACTIONS (7)
  - Mobility decreased [Not Recovered/Not Resolved]
  - Injection site erythema [Recovering/Resolving]
  - Injection site pruritus [Recovering/Resolving]
  - Injection site discolouration [Unknown]
  - Injection site bruising [Unknown]
  - Product dose omission in error [Unknown]
  - Inappropriate schedule of product administration [Unknown]

NARRATIVE: CASE EVENT DATE: 20250101
